FAERS Safety Report 10267622 (Version 1)
Quarter: 2014Q2

REPORT INFORMATION
  Report Type: Spontaneous
  Country: US (occurrence: None)
  Receive Date: 20140626
  Receipt Date: 20140626
  Transmission Date: 20141212
  Serious: Yes (Hospitalization)
  Sender: FDA-Public Use
  Company Number: None

PATIENT
  Age: 58 Year
  Sex: Male
  Weight: 102.4 kg

DRUGS (17)
  1. RIBAVIRIN [Suspect]
     Indication: HEPATITIS C
     Route: 048
     Dates: start: 20140401
  2. SOFOSBUVIR [Suspect]
     Route: 048
     Dates: start: 20140401
  3. CIPROFLOXACIN [Concomitant]
  4. NOVOLOG [Concomitant]
  5. MICONAZOLE [Concomitant]
  6. FLOXIN [Concomitant]
  7. MIDODRINE [Concomitant]
  8. LANTUS [Concomitant]
  9. ZOFRAN [Concomitant]
  10. LASIX [Concomitant]
  11. ALDACRONE [Concomitant]
  12. LACTULOSE [Concomitant]
  13. RIFAXIMIN [Concomitant]
  14. OMEPRAZOLE [Concomitant]
  15. ACTIGALL [Concomitant]
  16. LACTOBACILLUS [Concomitant]
  17. ALUMINUM HYDROXIDE AND MAGNESIUM HYDROXIDE [Concomitant]

REACTIONS (5)
  - Nausea [None]
  - Sepsis [None]
  - Hepatic encephalopathy [None]
  - Septic shock [None]
  - Renal failure acute [None]
